FAERS Safety Report 5943576-5 (Version None)
Quarter: 2008Q4

REPORT INFORMATION
  Report Type: 
  Country: None (occurrence: None)
  Receive Date: 20081106
  Receipt Date: 20081031
  Transmission Date: 20090506
  Serious: Yes (Death, Hospitalization, Other)
  Sender: FDA-Public Use
  Company Number: PHBS2006JP05463

PATIENT
  Sex: Female

DRUGS (12)
  1. AREDIA [Suspect]
     Indication: METASTASES TO BONE
     Dosage: 45 MG, UNK
     Route: 042
     Dates: start: 20040812, end: 20060224
  2. ZOLEDRONIC ACID [Suspect]
     Indication: METASTASES TO BONE
     Route: 042
  3. INCADRONIC ACID [Concomitant]
     Indication: METASTASES TO BONE
  4. CHEMOTHERAPEUTICS,OTHER [Concomitant]
  5. ANAESTHETICS, LOCAL [Concomitant]
     Route: 065
     Dates: start: 20060411
  6. XELODA [Concomitant]
     Dosage: 16 DF/D
     Route: 048
     Dates: start: 20031013, end: 20060318
  7. FURTULON [Concomitant]
     Dosage: 18 DF
     Route: 048
     Dates: start: 20020510
  8. ENDOXAN [Concomitant]
     Dosage: 4 DF
     Route: 048
     Dates: start: 20020510, end: 20020712
  9. ARIMIDEX [Concomitant]
     Dosage: 1 DF
     Route: 048
     Dates: start: 20020712, end: 20030405
  10. AROMASIN [Concomitant]
     Dosage: 1 DF
     Route: 048
     Dates: start: 20030405, end: 20031011
  11. XELODA [Concomitant]
     Dosage: 16 DF
     Route: 048
     Dates: start: 20031013, end: 20060318
  12. ZOLADEX [Concomitant]
     Dosage: 3.6 MG
     Route: 058
     Dates: start: 20020621, end: 20030920

REACTIONS (15)
  - BONE LESION [None]
  - BRAIN OPERATION [None]
  - DENTAL NECROSIS [None]
  - GINGIVAL SWELLING [None]
  - GINGIVITIS [None]
  - MALIGNANT NEOPLASM PROGRESSION [None]
  - MONOPARESIS [None]
  - NERVOUS SYSTEM DISORDER [None]
  - OSTEOMYELITIS [None]
  - OSTEONECROSIS [None]
  - PERIODONTITIS [None]
  - PERIOSTITIS [None]
  - POOR DENTAL CONDITION [None]
  - PURULENT DISCHARGE [None]
  - TOOTH EXTRACTION [None]
